FAERS Safety Report 6806351-5 (Version None)
Quarter: 2010Q2

REPORT INFORMATION
  Report Type: 
  Country: None (occurrence: None)
  Receive Date: 20100629
  Receipt Date: 20080204
  Transmission Date: 20101027
  Serious: No
  Sender: FDA-Public Use
  Company Number: US-PFIZER INC-2008011184

PATIENT
  Age: 86 Year
  Sex: Male

DRUGS (2)
  1. SPIRONOLACTONE [Suspect]
     Indication: SWELLING
  2. LASIX [Suspect]
     Indication: SWELLING

REACTIONS (2)
  - DRUG INEFFECTIVE [None]
  - URINE OUTPUT INCREASED [None]
